FAERS Safety Report 15256558 (Version 1)
Quarter: 2018Q3

REPORT INFORMATION
  Report Type: Spontaneous
  Country: US (occurrence: US)
  Receive Date: 20180808
  Receipt Date: 20180808
  Transmission Date: 20181010
  Serious: No
  Sender: FDA-Public Use
  Company Number: US-GLAXOSMITHKLINE-US2018139470

PATIENT
  Age: 84 Year
  Sex: Female

DRUGS (19)
  1. AZELASTINE. [Concomitant]
     Active Substance: AZELASTINE HYDROCHLORIDE
  2. HUMALOG [Concomitant]
     Active Substance: INSULIN LISPRO
  3. VITAMIN D3 [Concomitant]
     Active Substance: CHOLECALCIFEROL
  4. ZOCOR [Concomitant]
     Active Substance: SIMVASTATIN
  5. LOPRESSOR [Concomitant]
     Active Substance: METOPROLOL TARTRATE
  6. METOPROLOL. [Concomitant]
     Active Substance: METOPROLOL
  7. LASIX [Concomitant]
     Active Substance: FUROSEMIDE
  8. SPIRIVA [Concomitant]
     Active Substance: TIOTROPIUM BROMIDE MONOHYDRATE
  9. VITAMIN B12 [Concomitant]
     Active Substance: CYANOCOBALAMIN
  10. ADVAIR DISKUS [Suspect]
     Active Substance: FLUTICASONE PROPIONATE\SALMETEROL XINAFOATE
     Indication: ASTHMA
     Dosage: 1 PUFF(S), BID
     Route: 055
     Dates: start: 201806
  11. ALBUTEROL NEBULIZER [Concomitant]
     Active Substance: ALBUTEROL
  12. CYMBALTA [Concomitant]
     Active Substance: DULOXETINE HYDROCHLORIDE
  13. FLONASE [Concomitant]
     Active Substance: FLUTICASONE PROPIONATE
  14. LANTUS [Concomitant]
     Active Substance: INSULIN GLARGINE
  15. SIMVASTATIN. [Concomitant]
     Active Substance: SIMVASTATIN
  16. ADVAIR HFA [Suspect]
     Active Substance: FLUTICASONE PROPIONATE\SALMETEROL XINAFOATE
     Indication: ASTHMA
     Dosage: 2 PUFF(S), BID
     Route: 055
     Dates: start: 201806
  17. ASPIRIN. [Concomitant]
     Active Substance: ASPIRIN
  18. CALCIUM [Concomitant]
     Active Substance: CALCIUM
  19. PANTOPRAZOLE [Concomitant]
     Active Substance: PANTOPRAZOLE

REACTIONS (3)
  - Dysphagia [Recovered/Resolved]
  - Tongue discomfort [Not Recovered/Not Resolved]
  - Glossodynia [Not Recovered/Not Resolved]

NARRATIVE: CASE EVENT DATE: 201806
